FAERS Safety Report 6328339-3 (Version None)
Quarter: 2009Q3

REPORT INFORMATION
  Report Type: 
  Country: None (occurrence: None)
  Receive Date: 20090825
  Receipt Date: 20090521
  Transmission Date: 20100115
  Serious: No
  Sender: FDA-Public Use
  Company Number: US-ABBOTT-09P-163-0575275-00

PATIENT
  Sex: Female
  Weight: 65.83 kg

DRUGS (3)
  1. SYNTHROID [Suspect]
     Indication: HYPOTHYROIDISM
     Route: 048
     Dates: start: 20060101
  2. SYNTHROID [Suspect]
     Indication: THYROIDECTOMY
  3. SYNTHROID [Suspect]
     Indication: THYROID NEOPLASM

REACTIONS (1)
  - FATIGUE [None]
